FAERS Safety Report 9507047 (Version 1)
Quarter: 2013Q1

REPORT INFORMATION
  Report Type: Spontaneous
  Country: US (occurrence: None)
  Receive Date: 20130305
  Receipt Date: 20130305
  Transmission Date: 20140127
  Serious: Yes (Other)
  Sender: FDA-Public Use
  Company Number: 163-21880-12051317

PATIENT
  Age: 79 Year
  Sex: Female
  Weight: 66.91 kg

DRUGS (12)
  1. REVLIMID (LENALIDOMIDE) (CAPSULES) [Suspect]
     Indication: PLASMA CELL MYELOMA
     Dosage: 10 MG, DAILY X 3 WEEKS/OFF 1 WEEK, PO?
     Route: 048
     Dates: start: 20120414, end: 20120428
  2. ASA (ACETYLSALICYLIC ACID) (TABLETS) [Concomitant]
  3. LOMOTIL (LOMOTIL) (TABLETS) [Concomitant]
  4. ALLOPURINOL (ALLOPURINOL) (TABLETS) [Concomitant]
  5. SYNTHROID (LEVOTHYROXINE SODIUM) (TABLETS) [Concomitant]
  6. IMODIUM(LOPERAMIDE HYDROCHLORIDE) (TABLETS) [Concomitant]
  7. FOLIC ACID (FOLIC ACID ) (TABLETS) [Concomitant]
  8. DIPHENOXYLATE-ATROPINE (LOMOTIL) (TABLETS) [Concomitant]
  9. MULTIVITAMINS WITH MINERALS (MULTIVITAMINS WITH MINERALS) (TABLETS) [Concomitant]
  10. SM CALCIUM 600 + MINERALS (CALCIUM W/MINERLS) (TABLETS) [Concomitant]
  11. DENOSUMAB (DENOSUMAB) (UNKNOWN) [Concomitant]
  12. ACYCLOVIR (ACICLOVIR (CAPSULES) [Concomitant]

REACTIONS (5)
  - Respiratory tract infection [None]
  - Herpes zoster [None]
  - Diarrhoea [None]
  - White blood cell count decreased [None]
  - Pruritus [None]
